FAERS Safety Report 8814617 (Version 1)
Quarter: 2012Q4

REPORT INFORMATION
  Report Type: 
  Country: US (occurrence: None)
  Receive Date: 20120927
  Receipt Date: 20120927
  Transmission Date: 20130627
  Serious: Yes (Hospitalization)
  Sender: FDA-Public Use
  Company Number: None

PATIENT
  Sex: Female
  Weight: 117 kg

DRUGS (12)
  1. CARBOPLATIN [Suspect]
  2. PACLITAXEL (TAXOL) [Suspect]
  3. AMARYL [Concomitant]
  4. EFFEXOR [Concomitant]
  5. GLUCO SX [Concomitant]
  6. LOVENOX [Concomitant]
  7. NEURONTIN [Concomitant]
  8. NEXIUM [Concomitant]
  9. NORCO [Concomitant]
  10. SYNTHROID [Concomitant]
  11. TYGACIL [Concomitant]
  12. VALIUM [Concomitant]

REACTIONS (5)
  - Asthenia [None]
  - Dehydration [None]
  - Peripheral sensory neuropathy [None]
  - Wound infection [None]
  - Condition aggravated [None]
